FAERS Safety Report 19015832 (Version 1)
Quarter: 2021Q1

REPORT INFORMATION
  Report Type: Report from Study
  Country: GB (occurrence: GB)
  Receive Date: 20210316
  Receipt Date: 20210316
  Transmission Date: 20210420
  Serious: Yes (Hospitalization)
  Sender: FDA-Public Use
  Company Number: GB-BAYER-2021-102760

PATIENT
  Age: 58 Year
  Sex: Male
  Weight: 83 kg

DRUGS (9)
  1. CLOPIDOGREL [Concomitant]
     Active Substance: CLOPIDOGREL BISULFATE
     Indication: ANTIPLATELET THERAPY
  2. FRESH FROZEN PLASMA [Concomitant]
     Active Substance: HUMAN PLASMA
     Indication: TRANSFUSION
     Dosage: UNK
     Route: 065
     Dates: start: 20191118
  3. TRASYLOL [Suspect]
     Active Substance: APROTININ
     Indication: TRICUSPID VALVE REPLACEMENT
     Dosage: LOADING DOSE: MISSING DATA PUMP PRIMING DOSE 2 MILLION KIU TOTAL CONTINUOUS INFUSION DOSE: MISSING D
     Route: 065
     Dates: start: 20191118, end: 20191118
  4. HEPARIN [Concomitant]
     Active Substance: HEPARIN SODIUM
     Indication: ANTICOAGULANT THERAPY
     Dosage: 45 KILO?INTERNATIONAL UNIT TOTAL DURING SURGERY
     Route: 065
     Dates: start: 20191118, end: 20191118
  5. PLATELETS [Concomitant]
     Active Substance: HUMAN PLATELET, ALLOGENIC
     Indication: TRANSFUSION
     Dosage: UNK
     Dates: start: 20191118
  6. TRANEXAMIC ACID. [Concomitant]
     Active Substance: TRANEXAMIC ACID
     Indication: HAEMOSTASIS
     Dosage: UNK
     Route: 065
     Dates: start: 20191118, end: 20191118
  7. ASPIRIN [ACETYLSALICYLIC ACID] [Concomitant]
     Active Substance: ASPIRIN
     Indication: ANTIPLATELET THERAPY
     Route: 065
  8. TRASYLOL [Suspect]
     Active Substance: APROTININ
     Indication: INTERVENTRICULAR SEPTUM RUPTURE
  9. RED BLOOD CELLS [Concomitant]
     Active Substance: HUMAN RED BLOOD CELL
     Indication: TRANSFUSION
     Dosage: UNK
     Route: 065
     Dates: start: 20191118

REACTIONS (3)
  - Renal impairment [Not Recovered/Not Resolved]
  - Product use in unapproved indication [Unknown]
  - Off label use [None]

NARRATIVE: CASE EVENT DATE: 20191118
